FAERS Safety Report 8436708-0 (Version None)
Quarter: 2012Q2

REPORT INFORMATION
  Report Type: 
  Country: None (occurrence: None)
  Receive Date: 20120611
  Receipt Date: 20120611
  Transmission Date: 20120825
  Serious: Yes (Death)
  Sender: FDA-Public Use
  Company Number: None

PATIENT
  Sex: Female
  Weight: 78.9259 kg

DRUGS (1)
  1. CEPHALEXIN [Suspect]
     Indication: URINARY TRACT INFECTION
     Dosage: 1 CAP BY MOUTH 4 TIMES A DAY MOUTH
     Route: 048
     Dates: start: 20111223, end: 20111225

REACTIONS (5)
  - MATERNAL EXPOSURE DURING PREGNANCY [None]
  - UTERINE DISORDER [None]
  - VAGINAL HAEMORRHAGE [None]
  - ABORTION INCOMPLETE [None]
  - MUSCLE SPASMS [None]
